FAERS Safety Report 5123290-9 (Version None)
Quarter: 2006Q4

REPORT INFORMATION
  Report Type: 
  Country: None (occurrence: None)
  Receive Date: 20061009
  Receipt Date: 20061002
  Transmission Date: 20070319
  Serious: Yes (Hospitalization, Other)
  Sender: FDA-Public Use
  Company Number: JP-GLAXOSMITHKLINE-B0440734A

PATIENT
  Age: 26 Year
  Sex: Female

DRUGS (5)
  1. PAXIL [Suspect]
     Indication: DEPRESSION
     Route: 048
     Dates: start: 20060426
  2. UNKNOWN DRUG [Concomitant]
     Route: 048
  3. UNKNOWN DRUG [Concomitant]
     Route: 048
  4. ZOLPIDEM TARTRATE [Concomitant]
     Route: 048
  5. AMOXAN [Concomitant]
     Route: 048

REACTIONS (4)
  - ANXIETY [None]
  - IRRITABILITY [None]
  - SUICIDAL IDEATION [None]
  - SUICIDE ATTEMPT [None]
